FAERS Safety Report 24230812 (Version 1)
Quarter: 2024Q3

REPORT INFORMATION
  Report Type: Report from Study
  Country: US (occurrence: US)
  Receive Date: 20240821
  Receipt Date: 20240821
  Transmission Date: 20241017
  Serious: Yes (Hospitalization)
  Sender: ROCHE
  Company Number: US-ROCHE-10000057830

PATIENT
  Age: 70 Year
  Sex: Female
  Weight: 55.33 kg

DRUGS (5)
  1. XOLAIR [Suspect]
     Active Substance: OMALIZUMAB
     Indication: Urticaria
     Route: 065
     Dates: start: 20240404, end: 20240404
  2. DIPHENHYDRAMINE [Concomitant]
     Active Substance: DIPHENHYDRAMINE
  3. RINVOQ [Concomitant]
     Active Substance: UPADACITINIB
     Dates: start: 20240217, end: 20240217
  4. ATIVAN [Concomitant]
     Active Substance: LORAZEPAM
  5. BENADRYL SKIN ALLERGY RELIEF [Concomitant]
     Indication: Dermatitis allergic

REACTIONS (3)
  - Malaise [Recovered/Resolved]
  - Pyrexia [Recovered/Resolved]
  - Pruritus [Not Recovered/Not Resolved]

NARRATIVE: CASE EVENT DATE: 20240406
